FAERS Safety Report 23992335 (Version 1)
Quarter: 2024Q2

REPORT INFORMATION
  Report Type: Spontaneous
  Country: ES (occurrence: ES)
  Receive Date: 20240620
  Receipt Date: 20240620
  Transmission Date: 20240716
  Serious: Yes (Death, Other)
  Sender: FDA-Public Use
  Company Number: ES-AEMPS-1253736

PATIENT
  Age: 39 Year
  Sex: Male

DRUGS (8)
  1. ACETAMINOPHEN [Suspect]
     Active Substance: ACETAMINOPHEN
     Indication: Pyrexia
     Dosage: DOSE DESCRIPTION : UNK
     Dates: start: 20220818, end: 20220819
  2. ACETAMINOPHEN [Suspect]
     Active Substance: ACETAMINOPHEN
     Dosage: UNK
     Route: 042
     Dates: start: 20220818, end: 20220819
  3. TECLISTAMAB [Suspect]
     Active Substance: TECLISTAMAB
     Indication: Plasma cell myeloma refractory
     Dosage: UNK
     Dates: start: 20220624, end: 20220812
  4. TOCILIZUMAB [Suspect]
     Active Substance: TOCILIZUMAB
     Indication: COVID-19
     Dosage: 600 MG (600MG SINGLE DOSE)
     Route: 042
     Dates: start: 20220818, end: 20220818
  5. MEROPENEM [Suspect]
     Active Substance: MEROPENEM
     Indication: Pneumonia
     Dosage: TIME INTERVAL: 0.33333333 DAYS: 1 G, TID (CADA 8H)
     Route: 042
     Dates: start: 20220818
  6. ENOXAPARIN SODIUM [Suspect]
     Active Substance: ENOXAPARIN SODIUM
     Indication: Prophylaxis
     Dosage: 40 MG, QD (1 CADA 24H)
     Route: 058
     Dates: start: 20220818
  7. DEXAMETHASONE [Suspect]
     Active Substance: DEXAMETHASONE
     Indication: COVID-19
     Dosage: 6 MG, QD (6MG CADA 24H)
     Route: 042
     Dates: start: 20220818, end: 20220819
  8. LINEZOLID [Suspect]
     Active Substance: LINEZOLID
     Indication: Pneumonia
     Dosage: 600 MG, BID (600MG CADA 12)
     Route: 042
     Dates: start: 20220818, end: 20220819

REACTIONS (2)
  - Hepatitis acute [Fatal]
  - Hepatitis fulminant [Fatal]

NARRATIVE: CASE EVENT DATE: 20220819
